FAERS Safety Report 22239246 (Version 1)
Quarter: 2023Q2

REPORT INFORMATION
  Report Type: Spontaneous
  Country: BY (occurrence: BY)
  Receive Date: 20230421
  Receipt Date: 20230421
  Transmission Date: 20230722
  Serious: Yes (Life-Threatening)
  Sender: FDA-Public Use
  Company Number: BY-JNJFOC-20230438510

PATIENT
  Age: 69 Year
  Sex: Male
  Weight: 48 kg

DRUGS (12)
  1. SIRTURO [Suspect]
     Active Substance: BEDAQUILINE FUMARATE
     Indication: Antibiotic prophylaxis
     Dosage: FOR 2WKS
     Route: 048
     Dates: start: 20221215
  2. SIRTURO [Suspect]
     Active Substance: BEDAQUILINE FUMARATE
     Route: 048
     Dates: end: 20230325
  3. PRETOMANID [Suspect]
     Active Substance: PRETOMANID
     Indication: Antibiotic prophylaxis
     Route: 048
     Dates: start: 20221215, end: 20230325
  4. LINEZOLID [Suspect]
     Active Substance: LINEZOLID
     Indication: Antibiotic prophylaxis
     Route: 048
     Dates: start: 20221215, end: 20230325
  5. MOXIFLOXACIN [Suspect]
     Active Substance: MOXIFLOXACIN
     Indication: Antibiotic prophylaxis
     Route: 048
     Dates: start: 20221215, end: 20230325
  6. FOLIC ACID [Concomitant]
     Active Substance: FOLIC ACID
     Indication: Anaemia
     Dates: start: 20221115
  7. PHYTOCHOL NP [Concomitant]
     Indication: Renal failure
     Dosage: 2 CAPSULES 3 TIMES A DAY
     Dates: start: 20221116
  8. CYANOCOBALAMIN [Concomitant]
     Active Substance: CYANOCOBALAMIN
     Indication: Anaemia
     Dosage: 2000 MCG PER DAY
     Route: 030
     Dates: start: 20221115
  9. ASPIRIN [Concomitant]
     Active Substance: ASPIRIN
  10. ATORVASTATIN [Concomitant]
     Active Substance: ATORVASTATIN
  11. ENALAPRIL [Concomitant]
     Active Substance: ENALAPRIL
  12. OMEPRAZOLE [Concomitant]
     Active Substance: OMEPRAZOLE

REACTIONS (2)
  - Acute kidney injury [Recovering/Resolving]
  - Anaemia [Not Recovered/Not Resolved]

NARRATIVE: CASE EVENT DATE: 20230307
